FAERS Safety Report 6410594-2 (Version None)
Quarter: 2009Q4

REPORT INFORMATION
  Report Type: 
  Country: None (occurrence: None)
  Receive Date: 20091022
  Receipt Date: 20091015
  Transmission Date: 20100525
  Serious: Yes (Hospitalization)
  Sender: FDA-Public Use
  Company Number: US-BIOGENIDEC-2008BI002187

PATIENT
  Age: 28 Year
  Sex: Female

DRUGS (2)
  1. AVONEX [Suspect]
     Indication: MULTIPLE SCLEROSIS
     Route: 030
     Dates: start: 20060324, end: 20061022
  2. AVONEX [Suspect]
     Route: 030
     Dates: start: 20080118

REACTIONS (2)
  - ABNORMAL LABOUR [None]
  - HEART RATE INCREASED [None]
